FAERS Safety Report 17729405 (Version 2)
Quarter: 2021Q1

REPORT INFORMATION
  Report Type: Spontaneous
  Country: CA (occurrence: CA)
  Receive Date: 20200430
  Receipt Date: 20210120
  Transmission Date: 20210419
  Serious: Yes (Hospitalization, Other)
  Sender: FDA-Public Use
  Company Number: CA-ACCORD-180060

PATIENT
  Age: 54 Year
  Sex: Female
  Weight: 90 kg

DRUGS (3)
  1. ETOPOSIDE. [Suspect]
     Active Substance: ETOPOSIDE
     Indication: LUNG NEOPLASM MALIGNANT
     Dosage: INTRAVENOUS LIQUID, 1 EVERY 3 DAYS
     Route: 042
  2. CARBOPLATIN. [Suspect]
     Active Substance: CARBOPLATIN
     Indication: LUNG NEOPLASM MALIGNANT
     Dosage: 1 EVERY 21 DAYS, INTRAVENOUS SOLUTION
     Route: 042
  3. ETOPOSIDE. [Suspect]
     Active Substance: ETOPOSIDE
     Indication: LUNG NEOPLASM MALIGNANT
     Dosage: INTRAVENOUS LIQUID, 1 EVERY 21 DAYS
     Route: 042

REACTIONS (2)
  - Pancytopenia [Unknown]
  - Febrile neutropenia [Unknown]
